FAERS Safety Report 4920003-8 (Version None)
Quarter: 2006Q1

REPORT INFORMATION
  Report Type: 
  Country: None (occurrence: None)
  Receive Date: 20060217
  Receipt Date: 20060206
  Transmission Date: 20060701
  Serious: Yes (Hospitalization)
  Sender: FDA-Public Use
  Company Number: 2005BI019271

PATIENT
  Age: 44 Year
  Sex: Female

DRUGS (7)
  1. AVONEX [Suspect]
     Indication: MULTIPLE SCLEROSIS
     Dosage: 30 UG;QW;IM
     Route: 030
     Dates: start: 19970701, end: 20050101
  2. AVONEX [Suspect]
     Indication: MULTIPLE SCLEROSIS
     Dosage: 30 UG;QW;IM
     Route: 030
     Dates: start: 20050101
  3. INSULIN [Concomitant]
  4. PREMPRO [Concomitant]
  5. CLONAZEPAM [Concomitant]
  6. PAMELOR [Concomitant]
  7. MIRALAX [Concomitant]

REACTIONS (5)
  - CHOLECYSTITIS CHRONIC [None]
  - CHOLELITHIASIS [None]
  - CONSTIPATION [None]
  - DEPRESSION [None]
  - DIARRHOEA [None]
